FAERS Safety Report 24591126 (Version 1)
Quarter: 2024Q4

REPORT INFORMATION
  Report Type: Spontaneous
  Country: PL (occurrence: PL)
  Receive Date: 20241107
  Receipt Date: 20241107
  Transmission Date: 20250114
  Serious: Yes (Other)
  Sender: NOVITIUM PHARMA
  Company Number: PL-NOVITIUMPHARMA-2024PLNVP02478

PATIENT
  Age: 75 Year

DRUGS (2)
  1. PREDNISONE [Suspect]
     Active Substance: PREDNISONE
     Indication: Immunosuppressant drug therapy
  2. AZATHIOPRINE [Concomitant]
     Active Substance: AZATHIOPRINE

REACTIONS (2)
  - Squamous cell carcinoma [Unknown]
  - Basal cell carcinoma [Unknown]
